FAERS Safety Report 4793873-4 (Version None)
Quarter: 2005Q4

REPORT INFORMATION
  Report Type: 
  Country: None (occurrence: None)
  Receive Date: 20051011
  Receipt Date: 20050929
  Transmission Date: 20060501
  Serious: Yes (Hospitalization)
  Sender: FDA-Public Use
  Company Number: 2005SE05500

PATIENT
  Age: 77 Year
  Sex: Male

DRUGS (8)
  1. BLOPRESS [Suspect]
     Indication: DRUG USE FOR UNKNOWN INDICATION
     Route: 048
     Dates: end: 20050621
  2. DIAMOX [Suspect]
     Indication: PAPILLOEDEMA
     Route: 048
     Dates: start: 20050612, end: 20050621
  3. GLUCOPHAGE [Suspect]
     Route: 048
     Dates: end: 20050621
  4. TOREM [Suspect]
     Route: 048
  5. SINTROM [Concomitant]
     Route: 048
  6. LESCOL [Concomitant]
     Route: 048
  7. STARLIX [Concomitant]
     Route: 048
  8. LOPRESSOR [Concomitant]
     Route: 048

REACTIONS (3)
  - CONDITION AGGRAVATED [None]
  - METABOLIC ACIDOSIS [None]
  - RENAL FAILURE CHRONIC [None]
